FAERS Safety Report 20319216 (Version 1)
Quarter: 2022Q1

REPORT INFORMATION
  Report Type: Report from Study
  Country: US (occurrence: US)
  Receive Date: 20220110
  Receipt Date: 20220110
  Transmission Date: 20220423
  Serious: Yes (Hospitalization, Other)
  Sender: FDA-Public Use
  Company Number: US-GILEAD-2022-0564513

PATIENT
  Age: 86 Year
  Sex: Male

DRUGS (24)
  1. AZTREONAM LYSINE [Suspect]
     Active Substance: AZTREONAM LYSINE
     Indication: Bronchiectasis
     Dosage: RECONSTITUTE WITH 1ML SUPPLIED DILUENT, TID FOR 28 DAYS ON, 28 DAYS OFF
     Route: 055
  2. BUDESONIDE [Concomitant]
     Active Substance: BUDESONIDE
  3. ADVAIR HFA [Concomitant]
     Active Substance: FLUTICASONE PROPIONATE\SALMETEROL XINAFOATE
  4. ALPHAGAN P [Concomitant]
     Active Substance: BRIMONIDINE TARTRATE
  5. SODIUM CHLORIDE [Concomitant]
     Active Substance: SODIUM CHLORIDE
  6. MIRTAZAPINE [Concomitant]
     Active Substance: MIRTAZAPINE
  7. TRAMADOL [Concomitant]
     Active Substance: TRAMADOL
  8. IPRATROPIUM BROMIDE [Concomitant]
     Active Substance: IPRATROPIUM BROMIDE
  9. ASPIRIN [Concomitant]
     Active Substance: ASPIRIN
  10. TAMSULOSIN HYDROCHLORIDE [Concomitant]
     Active Substance: TAMSULOSIN HYDROCHLORIDE
  11. VENLAFAXINE HYDROCHLORIDE [Concomitant]
     Active Substance: VENLAFAXINE HYDROCHLORIDE
  12. MEMANTINE HYDROCHLORIDE [Concomitant]
     Active Substance: MEMANTINE HYDROCHLORIDE
  13. MIRALAX [Concomitant]
     Active Substance: POLYETHYLENE GLYCOL 3350
  14. VITAMIN D NOS [Concomitant]
     Active Substance: VITAMIN D NOS
  15. CARVEDILOL [Concomitant]
     Active Substance: CARVEDILOL
  16. VENTOLIN [Concomitant]
     Active Substance: ALBUTEROL SULFATE
  17. GALANTAMINE HYDROBROMIDE [Concomitant]
     Active Substance: GALANTAMINE HYDROBROMIDE
  18. ABILIFY [Concomitant]
     Active Substance: ARIPIPRAZOLE
  19. LAMOTRIGINE [Concomitant]
     Active Substance: LAMOTRIGINE
  20. ZYRTEC [Concomitant]
     Active Substance: CETIRIZINE HYDROCHLORIDE
  21. TOBRAMYCIN [Concomitant]
     Active Substance: TOBRAMYCIN
  22. LASIX [Concomitant]
     Active Substance: FUROSEMIDE
  23. HYDRALAZINE HYDROCHLORIDE [Concomitant]
     Active Substance: HYDRALAZINE HYDROCHLORIDE
  24. LEVAQUIN [Concomitant]
     Active Substance: LEVOFLOXACIN

REACTIONS (3)
  - Pneumonia aspiration [Unknown]
  - Aspiration [Unknown]
  - Off label use [Not Recovered/Not Resolved]
